APPROVED DRUG PRODUCT: ACZONE
Active Ingredient: DAPSONE
Strength: 7.5%
Dosage Form/Route: GEL;TOPICAL
Application: N207154 | Product #001 | TE Code: AB
Applicant: ALMIRALL LLC
Approved: Feb 24, 2016 | RLD: Yes | RS: Yes | Type: RX

PATENTS:
Patent 11273132 | Expires: Nov 18, 2033